FAERS Safety Report 23737914 (Version 1)
Quarter: 2024Q2

REPORT INFORMATION
  Report Type: Report from Study
  Country: US (occurrence: None)
  Receive Date: 20240412
  Receipt Date: 20240412
  Transmission Date: 20240716
  Serious: Yes (Life-Threatening, Other)
  Sender: FDA-Public Use
  Company Number: 2020SE80531

PATIENT
  Age: 9724 Day
  Sex: Female
  Weight: 62.6 kg

DRUGS (1)
  1. FASENRA [Suspect]
     Active Substance: BENRALIZUMAB
     Route: 058

REACTIONS (3)
  - Diabetic coma [Unknown]
  - Anxiety [Unknown]
  - Skin lesion [Unknown]

NARRATIVE: CASE EVENT DATE: 20200612
